FAERS Safety Report 5441224-4 (Version None)
Quarter: 2007Q3

REPORT INFORMATION
  Report Type: 
  Country: None (occurrence: None)
  Receive Date: 20070901
  Receipt Date: 20070822
  Transmission Date: 20080115
  Serious: Yes (Other)
  Sender: FDA-Public Use
  Company Number: US-PFIZER INC-2007070387

PATIENT
  Sex: Female
  Weight: 72.727 kg

DRUGS (1)
  1. LYRICA [Suspect]

REACTIONS (2)
  - CREATINE PHOSPHOKINASE DECREASED [None]
  - RHABDOMYOLYSIS [None]
